FAERS Safety Report 8890770 (Version 2)
Quarter: 2013Q2

REPORT INFORMATION
  Report Type: Spontaneous
  Country: BR (occurrence: BR)
  Receive Date: 20121107
  Receipt Date: 20130523
  Transmission Date: 20140414
  Serious: Yes (Other)
  Sender: FDA-Public Use
  Company Number: BR-ROCHE-1151724

PATIENT
  Sex: Female
  Weight: 77 kg

DRUGS (1)
  1. XENICAL [Suspect]
     Indication: WEIGHT DECREASED
     Route: 065

REACTIONS (2)
  - Cystitis haemorrhagic [Recovered/Resolved]
  - Urinary tract infection [Recovered/Resolved]
